FAERS Safety Report 6451154-7 (Version None)
Quarter: 2009Q4

REPORT INFORMATION
  Report Type: 
  Country: None (occurrence: None)
  Receive Date: 20091123
  Receipt Date: 20090218
  Transmission Date: 20100525
  Serious: Yes (Other)
  Sender: FDA-Public Use
  Company Number: US-AMGEN-QUU332278

PATIENT
  Sex: Female

DRUGS (8)
  1. ENBREL [Suspect]
     Indication: RHEUMATOID ARTHRITIS
     Route: 058
     Dates: start: 20080701, end: 20090201
  2. METHOTREXATE [Concomitant]
  3. FOLIC ACID [Concomitant]
  4. HYDROXYCHLOROQUINE SULFATE [Concomitant]
  5. HYDROCODONE [Concomitant]
  6. FLUOXETINE [Concomitant]
  7. TRAMADOL HCL [Concomitant]
  8. ASPIRIN [Concomitant]

REACTIONS (1)
  - DEMYELINATION [None]
